FAERS Safety Report 7303526-6 (Version None)
Quarter: 2011Q1

REPORT INFORMATION
  Report Type: 
  Country: None (occurrence: None)
  Receive Date: 20110221
  Receipt Date: 20110216
  Transmission Date: 20110831
  Serious: Yes (Life-Threatening, Hospitalization, Other)
  Sender: FDA-Public Use
  Company Number: PHHY2010US60418

PATIENT
  Sex: Male
  Weight: 111 kg

DRUGS (3)
  1. EXJADE [Suspect]
     Indication: MYELODYSPLASTIC SYNDROME
     Dosage: 2000 MG DAILY
     Route: 048
     Dates: start: 20100819
  2. EXJADE [Suspect]
     Dosage: 1000 MG DAILY
     Route: 048
  3. EXJADE [Suspect]
     Dosage: 1500 MG DAILY
     Route: 048

REACTIONS (4)
  - FAECAL INCONTINENCE [None]
  - FEELING ABNORMAL [None]
  - ABSCESS NECK [None]
  - DIARRHOEA [None]
